FAERS Safety Report 5163952-0 (Version None)
Quarter: 2006Q4

REPORT INFORMATION
  Report Type: 
  Country: None (occurrence: None)
  Receive Date: 20061204
  Receipt Date: 20061025
  Transmission Date: 20070319
  Serious: Yes (Death, Hospitalization)
  Sender: FDA-Public Use
  Company Number: US-ELI_LILLY_AND_COMPANY-US200610004702

PATIENT
  Age: 90 Year
  Sex: Male

DRUGS (2)
  1. CYMBALTA [Suspect]
     Indication: PAIN
     Dosage: 60 MG, UNK
  2. ZYVOX [Concomitant]
     Route: 048

REACTIONS (3)
  - BLADDER CANCER [None]
  - CONFUSIONAL STATE [None]
  - URINARY TRACT INFECTION [None]
